FAERS Safety Report 13252503 (Version 1)
Quarter: 2017Q1

REPORT INFORMATION
  Report Type: Spontaneous
  Country: US (occurrence: US)
  Receive Date: 20170220
  Receipt Date: 20170220
  Transmission Date: 20170428
  Serious: No
  Sender: FDA-Public Use
  Company Number: US-TEVA-739407ACC

PATIENT
  Age: 60 Year
  Sex: Female

DRUGS (16)
  1. SUBOXONE [Concomitant]
     Active Substance: BUPRENORPHINE HYDROCHLORIDE\NALOXONE HYDROCHLORIDE
  2. GABAPENTIN. [Concomitant]
     Active Substance: GABAPENTIN
  3. DEPAKOTE [Concomitant]
     Active Substance: DIVALPROEX SODIUM
  4. PROTONIX [Concomitant]
     Active Substance: PANTOPRAZOLE SODIUM
  5. PRIMIDONE. [Concomitant]
     Active Substance: PRIMIDONE
  6. GLUCOSAMINE [Concomitant]
     Active Substance: GLUCOSAMINE
  7. TYLENOL [Concomitant]
     Active Substance: ACETAMINOPHEN
  8. PROPRANOLOL [Concomitant]
     Active Substance: PROPRANOLOL HYDROCHLORIDE
  9. CLONIDINE. [Concomitant]
     Active Substance: CLONIDINE
  10. CLONAZEPAM. [Concomitant]
     Active Substance: CLONAZEPAM
  11. VITAMIN D [Concomitant]
     Active Substance: CHOLECALCIFEROL
  12. AMBIEN [Concomitant]
     Active Substance: ZOLPIDEM TARTRATE
  13. COPAXONE [Suspect]
     Active Substance: GLATIRAMER ACETATE
     Indication: MULTIPLE SCLEROSIS
     Route: 058
     Dates: start: 20150319
  14. LYRICA [Concomitant]
     Active Substance: PREGABALIN
  15. INDERAL [Concomitant]
     Active Substance: PROPRANOLOL HYDROCHLORIDE
  16. ZOLINZA [Concomitant]
     Active Substance: VORINOSTAT

REACTIONS (1)
  - Bone pain [Unknown]

NARRATIVE: CASE EVENT DATE: 20170116
